FAERS Safety Report 19894346 (Version 2)
Quarter: 2021Q4

REPORT INFORMATION
  Report Type: Report from Study
  Country: JP (occurrence: JP)
  Receive Date: 20210928
  Receipt Date: 20211005
  Transmission Date: 20220303
  Serious: Yes (Hospitalization)
  Sender: FDA-Public Use
  Company Number: JP-BRISTOL-MYERS SQUIBB COMPANY-BMS-2021-097544

PATIENT
  Age: 71 Year
  Sex: Male
  Weight: 58 kg

DRUGS (22)
  1. NIVOLUMAB [Suspect]
     Active Substance: NIVOLUMAB
     Indication: Oesophageal carcinoma
     Dosage: 480 MILLIGRAM, Q4WK
     Route: 042
     Dates: start: 20210210
  2. BMS-986310 [Suspect]
     Active Substance: BMS-986310
     Indication: Oesophageal carcinoma
     Dosage: 40 MILLIGRAM, QD
     Route: 048
     Dates: start: 20210210
  3. MORPHINE HYDROCHLORIDE [Concomitant]
     Active Substance: MORPHINE HYDROCHLORIDE
     Indication: Cancer pain
     Dosage: 5 MILLIGRAM, PRN
     Route: 048
     Dates: start: 20201208
  4. MAGNESIUM OXIDE [Concomitant]
     Active Substance: MAGNESIUM OXIDE
     Indication: Constipation prophylaxis
     Dosage: 330 MILLIGRAM, Q8H
     Route: 048
     Dates: start: 20201215, end: 20210920
  5. SENNOSIDES A AND B [Concomitant]
     Active Substance: SENNOSIDES A AND B
     Indication: Constipation prophylaxis
     Dosage: 12 MILLIGRAM, PRN
     Route: 048
     Dates: start: 20201215, end: 20210920
  6. LANSOPRAZOLE [Concomitant]
     Active Substance: LANSOPRAZOLE
     Indication: Gastritis prophylaxis
     Dosage: 15 MILLIGRAM, QD
     Route: 048
     Dates: start: 20210915, end: 20210920
  7. BUTYLSCOPOLAMINE BROMIDE [Concomitant]
     Active Substance: BUTYLSCOPOLAMINE BROMIDE
     Indication: Abdominal pain
     Dosage: 10 MILLIGRAM, PRN
     Route: 048
     Dates: start: 20210804, end: 20210920
  8. ALPRAZOLAM [Concomitant]
     Active Substance: ALPRAZOLAM
     Indication: Prophylaxis of nausea and vomiting
     Dosage: 0.4 MILLIGRAM, PRN
     Route: 048
     Dates: start: 20200623, end: 20210920
  9. ENORAS [Concomitant]
     Indication: Nutritional supplementation
     Dosage: 187.5 MILLILITER, PRN
     Route: 048
     Dates: start: 20210830, end: 20210920
  10. AMINO ACIDS\DEXTROSE\ELECTROLYTES NOS\MINERALS\VITAMINS [Concomitant]
     Active Substance: AMINO ACIDS\DEXTROSE\ELECTROLYTES NOS\MINERALS\VITAMINS
     Indication: Nutritional supplementation
     Dosage: 1000 MILLILITER, QD
     Route: 041
     Dates: start: 20200921, end: 20210920
  11. PATANOL [Concomitant]
     Active Substance: OLOPATADINE HYDROCHLORIDE
     Indication: Seasonal allergy
     Dosage: 1 GTT DROPS, Q6H
     Route: 047
     Dates: start: 20210310
  12. LOPERAMIDE [Concomitant]
     Active Substance: LOPERAMIDE
     Indication: Prophylaxis against diarrhoea
     Dosage: 1 MILLIGRAM, PRN
     Route: 048
     Dates: start: 20210410
  13. ZOLPIDEM TARTRATE [Concomitant]
     Active Substance: ZOLPIDEM TARTRATE
     Indication: Prophylaxis
     Dosage: 10 MILLIGRAM, PRN
     Route: 048
     Dates: start: 20210622, end: 20210920
  14. PRIMPERAN [Concomitant]
     Active Substance: METOCLOPRAMIDE HYDROCHLORIDE
     Indication: Nausea
     Dosage: 5 MILLILITER, Q8H
     Route: 048
     Dates: start: 20210915, end: 20210920
  15. DOMPERIDONE [Concomitant]
     Active Substance: DOMPERIDONE
     Indication: Nausea
     Dosage: 10 MILLIGRAM, Q8H
     Route: 048
     Dates: start: 20210811, end: 20210920
  16. CLOTIAZEPAM [Concomitant]
     Active Substance: CLOTIAZEPAM
     Indication: Anxiety
     Dosage: 5 MILLIGRAM, Q8H
     Route: 048
     Dates: start: 20210830, end: 20210920
  17. OLANZAPINE [Concomitant]
     Active Substance: OLANZAPINE
     Indication: Nausea
     Dosage: 2.5 MILLIGRAM, QD
     Route: 048
     Dates: start: 20210913, end: 20210920
  18. OLANZAPINE [Concomitant]
     Active Substance: OLANZAPINE
     Dosage: 2.5 MILLIGRAM, QD
     Route: 048
     Dates: start: 20210922, end: 20210926
  19. OLANZAPINE [Concomitant]
     Active Substance: OLANZAPINE
     Dosage: 5 MILLIGRAM, QD
     Route: 048
     Dates: start: 20210927
  20. SP [DEQUALINIUM CHLORIDE] [Concomitant]
     Indication: Pain prophylaxis
     Dosage: 1 DOSAGE FORM, PRN
     Route: 049
     Dates: start: 20210913, end: 20210922
  21. AZULENE [Concomitant]
     Active Substance: AZULENE
     Indication: Pain prophylaxis
     Dosage: 1 DOSAGE FORM, PRN
     Route: 002
     Dates: start: 20210913, end: 20210920
  22. V ROHTO [Concomitant]
     Indication: Product used for unknown indication
     Route: 065

REACTIONS (1)
  - Colitis [Not Recovered/Not Resolved]

NARRATIVE: CASE EVENT DATE: 20210920
